FAERS Safety Report 8556182-3 (Version None)
Quarter: 2012Q3

REPORT INFORMATION
  Report Type: 
  Country: None (occurrence: None)
  Receive Date: 20120801
  Receipt Date: 20120723
  Transmission Date: 20120928
  Serious: Yes (Other)
  Sender: FDA-Public Use
  Company Number: FR-SHIRE-ALL1-2012-03652

PATIENT
  Sex: Female

DRUGS (11)
  1. MIDODRINE HYDROCHLORIDE [Suspect]
     Dosage: 30 MG, UNKNOWN
     Route: 048
     Dates: start: 20120703, end: 20120716
  2. ANAFRANIL [Suspect]
     Indication: MAJOR DEPRESSION
     Dosage: 150 MG, UNKNOWN
     Route: 030
     Dates: start: 20120622, end: 20120704
  3. ESOMEPRAZOLE [Concomitant]
     Indication: PROCEDURAL VOMITING
     Dosage: 40 MG, UNKNOWN
     Route: 065
     Dates: start: 20120620, end: 20120625
  4. AVASTIN [Suspect]
     Indication: BREAST CANCER
     Dosage: 1 DF, 1X/WEEK
     Route: 042
     Dates: start: 20120201, end: 20120716
  5. ANAFRANIL [Suspect]
     Dosage: 75 MG, UNKNOWN
     Route: 048
     Dates: start: 20120705
  6. CORTICOSTEROID NOS [Concomitant]
     Indication: PRODUCT USED FOR UNKNOWN INDICATION
     Dosage: UNK, UNKNOWN
     Route: 048
     Dates: start: 20120625
  7. ZYPREXA [Suspect]
     Indication: MAJOR DEPRESSION
     Dosage: 10 MG, UNKNOWN
     Route: 048
     Dates: start: 20120628, end: 20120716
  8. MIDODRINE HYDROCHLORIDE [Suspect]
     Indication: ORTHOSTATIC HYPOTENSION
     Dosage: 15 MG, UNKNOWN
     Route: 048
     Dates: start: 20120622, end: 20120702
  9. ONDANSETRON [Suspect]
     Indication: PROCEDURAL VOMITING
     Dosage: 1 DF, 1X/WEEK
     Route: 042
     Dates: start: 20120201, end: 20120716
  10. TAXOL [Suspect]
     Indication: BREAST CANCER
     Dosage: 1 DF, 1X/WEEK
     Route: 042
     Dates: start: 20120201, end: 20120716
  11. LARGACTIL                          /00011901/ [Suspect]
     Indication: MAJOR DEPRESSION
     Dosage: 250 DF, UNKNOWN (150-250 DF 4% DROPS FOR ORAL USE)
     Route: 048
     Dates: start: 20120620, end: 20120628

REACTIONS (1)
  - CYTOLYTIC HEPATITIS [None]
